FAERS Safety Report 7544030-X (Version None)
Quarter: 2011Q2

REPORT INFORMATION
  Report Type: 
  Country: None (occurrence: None)
  Receive Date: 20110613
  Receipt Date: 20050812
  Transmission Date: 20111010
  Serious: Yes (Death)
  Sender: FDA-Public Use
  Company Number: PHHO2005BR10936

PATIENT
  Age: 69 Year
  Sex: Female

DRUGS (5)
  1. PANTOPRAZOLE [Concomitant]
  2. LOPID [Concomitant]
  3. CLONAZEPAM [Concomitant]
  4. EXFORGE [Suspect]
     Indication: HYPERTENSION
     Dosage: UNK MG, QD
     Route: 048
  5. MOTILIUM [Concomitant]

REACTIONS (3)
  - MYOCARDIAL INFARCTION [None]
  - FATIGUE [None]
  - ANXIETY [None]
